FAERS Safety Report 21217473 (Version 1)
Quarter: 2022Q3

REPORT INFORMATION
  Report Type: Report from Study
  Country: PT (occurrence: PT)
  Receive Date: 20220816
  Receipt Date: 20220816
  Transmission Date: 20221027
  Serious: Yes (Other)
  Sender: FDA-Public Use
  Company Number: PT-SAMSUNG BIOEPIS-SB-2022-19678

PATIENT
  Sex: Female

DRUGS (9)
  1. IMRALDI [Suspect]
     Active Substance: ADALIMUMAB
     Indication: Axial spondyloarthritis
     Dosage: 40 MG/ 0.8 ML
     Route: 058
     Dates: start: 20220202, end: 202207
  2. VENLAFAXINE HYDROCHLORIDE [Concomitant]
     Active Substance: VENLAFAXINE HYDROCHLORIDE
     Indication: Product used for unknown indication
     Dosage: 1 PILL IN THE MORNING
     Route: 065
  3. ROSUVASTATINA TECNILOR [Concomitant]
     Indication: Product used for unknown indication
     Dosage: 1 PILL AT NIGHT
     Route: 065
  4. PANTOPRAZOL ALTER [Concomitant]
     Indication: Product used for unknown indication
     Dosage: 1 PILL IN FASTING
     Route: 065
  5. ASPIRIN [Concomitant]
     Active Substance: ASPIRIN
     Indication: Product used for unknown indication
     Dosage: 1 PILL AT DINNER
     Route: 065
  6. ETHYL LOFLAZEPATE [Concomitant]
     Active Substance: ETHYL LOFLAZEPATE
     Indication: Product used for unknown indication
     Dosage: UNKNOWN, AS REQUIRED
     Route: 065
  7. XANAX [Concomitant]
     Active Substance: ALPRAZOLAM
     Indication: Product used for unknown indication
     Dosage: 1 PILL AT NIGHT
     Route: 065
  8. PYRIDOXINE [Concomitant]
     Active Substance: PYRIDOXINE
     Indication: Product used for unknown indication
     Dosage: 1 PILL AT LUNCH
     Route: 065
  9. ISONIAZID [Concomitant]
     Active Substance: ISONIAZID
     Indication: Product used for unknown indication
     Dosage: 1 PILL IN THE MORNING
     Route: 065

REACTIONS (1)
  - Breast cancer female [Not Recovered/Not Resolved]
